FAERS Safety Report 8952964 (Version 1)
Quarter: 2012Q4

REPORT INFORMATION
  Report Type: 
  Country: DE (occurrence: DE)
  Receive Date: 20121203
  Receipt Date: 20121203
  Transmission Date: 20130627
  Serious: No
  Sender: FDA-Public Use
  Company Number: DE-SANOFI-AVENTIS-2012SA086285

PATIENT
  Age: 73 Year
  Sex: Female
  Weight: 64 kg

DRUGS (5)
  1. MULTAQ [Suspect]
     Indication: ATRIAL FIBRILLATION
     Route: 065
     Dates: start: 2010
  2. MARCUMAR [Concomitant]
     Indication: APOPLEXY
  3. L-THYROXIN HENNING [Concomitant]
  4. SIMVASTATIN [Concomitant]
  5. EZETROL [Concomitant]

REACTIONS (1)
  - Blood creatinine increased [Unknown]
